FAERS Safety Report 9001315 (Version 1)
Quarter: 2013Q1

REPORT INFORMATION
  Report Type: Spontaneous
  Country: US (occurrence: US)
  Receive Date: 20130107
  Receipt Date: 20130107
  Transmission Date: 20140127
  Serious: Yes (Death)
  Sender: FDA-Public Use
  Company Number: US-PFIZER INC-2013003231

PATIENT
  Age: 60 Year
  Sex: Female

DRUGS (5)
  1. IBUPROFEN [Suspect]
  2. MORPHINE SULFATE [Suspect]
  3. CHLORPHENIRAMINE [Suspect]
  4. COLCHICINE [Suspect]
  5. DIPHENHYDRAMINE [Suspect]

REACTIONS (1)
  - Death [Fatal]
